FAERS Safety Report 8481390-X (Version None)
Quarter: 2012Q3

REPORT INFORMATION
  Report Type: 
  Country: None (occurrence: None)
  Receive Date: 20120702
  Receipt Date: 20120629
  Transmission Date: 20120928
  Serious: Yes (Other)
  Sender: FDA-Public Use
  Company Number: RO-PFIZER INC-2012156592

PATIENT
  Sex: Female
  Weight: 60 kg

DRUGS (3)
  1. VALPROATE SODIUM [Concomitant]
     Indication: SCHIZOAFFECTIVE DISORDER
     Dosage: 600 MG, UNK
     Route: 048
     Dates: start: 20120201
  2. ZIPRASIDONE HYDROCHLORIDE [Suspect]
     Indication: SCHIZOAFFECTIVE DISORDER
     Dosage: 120 MG, UNK
     Route: 048
     Dates: start: 20120201
  3. COAXIL [Concomitant]
     Indication: SCHIZOAFFECTIVE DISORDER
     Dosage: 37.5 MG, UNK
     Route: 048
     Dates: start: 20120201

REACTIONS (2)
  - EXTRAPYRAMIDAL DISORDER [None]
  - SEDATION [None]
